FAERS Safety Report 7206562-3 (Version None)
Quarter: 2011Q1

REPORT INFORMATION
  Report Type: 
  Country: None (occurrence: None)
  Receive Date: 20110103
  Receipt Date: 20101223
  Transmission Date: 20110831
  Serious: Yes (Hospitalization, Other)
  Sender: FDA-Public Use
  Company Number: PHHY2010BR87973

PATIENT
  Sex: Female
  Weight: 53 kg

DRUGS (1)
  1. FORASEQ [Suspect]
     Indication: EMPHYSEMA
     Dosage: 1 DF, QD

REACTIONS (4)
  - TENDON RUPTURE [None]
  - LIMB DISCOMFORT [None]
  - FRACTURE [None]
  - HYPERTENSION [None]
